FAERS Safety Report 13258426 (Version 1)
Quarter: 2017Q1

REPORT INFORMATION
  Report Type: Report from Study
  Country: None (occurrence: US)
  Receive Date: 20170222
  Receipt Date: 20170222
  Transmission Date: 20170428
  Serious: Yes (Other)
  Sender: FDA-Public Use
  Company Number: US-ABBVIE-17K-163-1871205-00

PATIENT
  Age: 44 Year
  Sex: Female

DRUGS (2)
  1. HUMIRA [Suspect]
     Active Substance: ADALIMUMAB
     Route: 058
     Dates: start: 201602
  2. HUMIRA [Suspect]
     Active Substance: ADALIMUMAB
     Indication: CROHN^S DISEASE
     Route: 058
     Dates: start: 2014, end: 201510

REACTIONS (8)
  - Diabetes mellitus [Recovering/Resolving]
  - Impaired gastric emptying [Unknown]
  - Cervix carcinoma [Unknown]
  - Peripheral arthritis [Recovering/Resolving]
  - Irritable bowel syndrome [Unknown]
  - Gastric cancer [Recovering/Resolving]
  - Upper respiratory tract infection [Recovering/Resolving]
  - Crohn^s disease [Recovering/Resolving]

NARRATIVE: CASE EVENT DATE: 20170206
